FAERS Safety Report 21586017 (Version 2)
Quarter: 2022Q4

REPORT INFORMATION
  Report Type: Report from Study
  Country: NL (occurrence: NL)
  Receive Date: 20221111
  Receipt Date: 20221116
  Transmission Date: 20230112
  Serious: Yes (Other)
  Sender: FDA-Public Use
  Company Number: NL-GILEAD-2022-0604891

PATIENT
  Age: 49 Year
  Sex: Female

DRUGS (1)
  1. SACITUZUMAB GOVITECAN [Suspect]
     Active Substance: SACITUZUMAB GOVITECAN
     Indication: Triple negative breast cancer
     Dosage: 970 MG
     Route: 042
     Dates: start: 20220901, end: 20221109

REACTIONS (5)
  - Neutropenia [Unknown]
  - Disease progression [Not Recovered/Not Resolved]
  - Alopecia [Unknown]
  - Diarrhoea [Unknown]
  - Vomiting [Unknown]
